FAERS Safety Report 15113947 (Version 1)
Quarter: 2018Q3

REPORT INFORMATION
  Report Type: Spontaneous
  Country: US (occurrence: US)
  Receive Date: 20180706
  Receipt Date: 20180706
  Transmission Date: 20181010
  Serious: No
  Sender: FDA-Public Use
  Company Number: US-ASTRAZENECA-2018SE75140

PATIENT
  Sex: Female

DRUGS (1)
  1. BYDUREON BCISE [Suspect]
     Active Substance: EXENATIDE
     Dosage: 2.0MG UNKNOWN
     Route: 065

REACTIONS (11)
  - Erythema [Unknown]
  - Rash [Unknown]
  - Urticaria [Unknown]
  - Intentional product misuse [Unknown]
  - Injection site pain [Unknown]
  - Pruritus [Unknown]
  - Injection site urticaria [Unknown]
  - Injection site induration [Unknown]
  - Injection site hypersensitivity [Unknown]
  - Mass [Unknown]
  - Injection site pruritus [Unknown]
